FAERS Safety Report 25599405 (Version 1)
Quarter: 2025Q3

REPORT INFORMATION
  Report Type: Spontaneous
  Country: TR (occurrence: TR)
  Receive Date: 20250724
  Receipt Date: 20250724
  Transmission Date: 20251020
  Serious: Yes (Hospitalization, Other)
  Sender: NOVO NORDISK
  Company Number: TR-NOVOPROD-1479578

PATIENT
  Age: 35 Year
  Sex: Female

DRUGS (4)
  1. LEVEMIR [Suspect]
     Active Substance: INSULIN DETEMIR
     Indication: Gestational diabetes
     Dosage: 20 IU, QD
  2. IRON [Concomitant]
     Active Substance: IRON
     Indication: Product used for unknown indication
  3. ASPIRIN [Concomitant]
     Active Substance: ASPIRIN
     Indication: Hypertension
  4. PHENIRAMINE [Concomitant]
     Active Substance: PHENIRAMINE
     Indication: Rash pruritic

REACTIONS (6)
  - Purpura [Unknown]
  - Rash pruritic [Unknown]
  - Blood glucose increased [Unknown]
  - Hypersensitivity [Unknown]
  - Drug ineffective [Unknown]
  - Maternal exposure during pregnancy [Unknown]
